FAERS Safety Report 12059727 (Version 2)
Quarter: 2017Q3

REPORT INFORMATION
  Report Type: Spontaneous
  Country: FR (occurrence: FR)
  Receive Date: 20160210
  Receipt Date: 20170911
  Transmission Date: 20171127
  Serious: Yes (Hospitalization)
  Sender: FDA-Public Use
  Company Number: FR-SUN PHARMACEUTICAL INDUSTRIES LTD-2016R1-111208

PATIENT
  Age: 47 Year
  Sex: Male

DRUGS (1)
  1. CLOZAPINE. [Suspect]
     Active Substance: CLOZAPINE
     Indication: SCHIZOPHRENIA
     Dosage: UNK
     Route: 065

REACTIONS (6)
  - Faecaloma [Recovering/Resolving]
  - Constipation [Recovering/Resolving]
  - Budd-Chiari syndrome [Recovering/Resolving]
  - Colitis ischaemic [Recovering/Resolving]
  - Abdominal distension [Recovering/Resolving]
  - Peritonitis [Recovering/Resolving]
